FAERS Safety Report 6028318-X (Version None)
Quarter: 2009Q1

REPORT INFORMATION
  Report Type: 
  Country: None (occurrence: None)
  Receive Date: 20090106
  Receipt Date: 20081225
  Transmission Date: 20090719
  Serious: Yes (Other)
  Sender: FDA-Public Use
  Company Number: JP-PFIZER INC-2008159877

PATIENT

DRUGS (1)
  1. XALATAN [Suspect]
     Dosage: UNK
     Route: 031

REACTIONS (6)
  - EYE IRRITATION [None]
  - EYE PAIN [None]
  - EYELIDS PRURITUS [None]
  - GLAUCOMA [None]
  - GROWTH OF EYELASHES [None]
  - OCULAR HYPERAEMIA [None]
